FAERS Safety Report 11724205 (Version 1)
Quarter: 2015Q4

REPORT INFORMATION
  Report Type: Spontaneous
  Country: US (occurrence: US)
  Receive Date: 20151111
  Receipt Date: 20151111
  Transmission Date: 20160304
  Serious: Yes (Hospitalization, Other)
  Sender: FDA-Public Use
  Company Number: US-DSJP-DSU-2015-121203

PATIENT

DRUGS (3)
  1. BENICAR [Suspect]
     Active Substance: OLMESARTAN MEDOXOMIL
     Dosage: 20 MG, QD AT NIGHT
     Dates: start: 20091218, end: 201408
  2. BENICAR [Suspect]
     Active Substance: OLMESARTAN MEDOXOMIL
     Indication: HYPERTENSION
     Dosage: 40 MG, QD AT NIGHT
     Dates: start: 200711, end: 20091217
  3. CARVEDILOL. [Concomitant]
     Active Substance: CARVEDILOL
     Indication: PRODUCT USED FOR UNKNOWN INDICATION
     Dosage: 40 MG, QD
     Dates: start: 200708, end: 201505

REACTIONS (15)
  - Diverticulitis [Unknown]
  - Rectal prolapse [Recovered/Resolved]
  - Gastritis [Unknown]
  - Haemorrhoids [Unknown]
  - Anxiety [Unknown]
  - Dizziness [Unknown]
  - Dyspepsia [Unknown]
  - Fatigue [Not Recovered/Not Resolved]
  - Gastric polyps [Unknown]
  - Anorectal discomfort [Unknown]
  - Rectal haemorrhage [Unknown]
  - Malabsorption [Unknown]
  - Gastrooesophageal reflux disease [Unknown]
  - Diverticulum [Unknown]
  - Constipation [Unknown]

NARRATIVE: CASE EVENT DATE: 2007
